FAERS Safety Report 11897301 (Version 1)
Quarter: 2016Q1

REPORT INFORMATION
  Report Type: Spontaneous
  Country: PL (occurrence: PL)
  Receive Date: 20160108
  Receipt Date: 20160108
  Transmission Date: 20160526
  Serious: Yes (Other)
  Sender: FDA-Public Use
  Company Number: PL-STRIDES ARCOLAB LIMITED-2016SP000031

PATIENT

DRUGS (6)
  1. METHYLPREDNISOLONE. [Suspect]
     Active Substance: METHYLPREDNISOLONE
     Indication: KIDNEY TRANSPLANT REJECTION
     Dosage: 3.0 G, UNK
     Route: 040
  2. MYCOPHENOLATE MOFETIL. [Suspect]
     Active Substance: MYCOPHENOLATE MOFETIL
     Indication: IMMUNOSUPPRESSION
     Dosage: 2000 MG, QD
     Route: 065
  3. CORTICOSTEROIDS [Suspect]
     Active Substance: CORTICOSTEROID NOS
     Indication: IMMUNOSUPPRESSION
     Dosage: 0.5 MG/KG, QD
     Route: 065
  4. CICLOSPORIN [Suspect]
     Active Substance: CYCLOSPORINE
     Indication: IMMUNOSUPPRESSION
     Dosage: UNK
     Route: 065
  5. CORTICOSTEROIDS [Suspect]
     Active Substance: CORTICOSTEROID NOS
     Dosage: 10 MG, QD
     Route: 065
  6. CIPROFLOXACIN. [Concomitant]
     Active Substance: CIPROFLOXACIN
     Indication: PRODUCT USED FOR UNKNOWN INDICATION
     Dosage: UNK
     Route: 065

REACTIONS (10)
  - Kidney fibrosis [Unknown]
  - Visual acuity reduced [Unknown]
  - Vitritis [Unknown]
  - Retinitis [Unknown]
  - Retinal infiltrates [Unknown]
  - Polyomavirus-associated nephropathy [Unknown]
  - Retinal detachment [Unknown]
  - Necrotising herpetic retinopathy [Unknown]
  - Cytomegalovirus infection [Unknown]
  - Retinal degeneration [Unknown]
